FAERS Safety Report 8822903 (Version 1)
Quarter: 2012Q4

REPORT INFORMATION
  Report Type: 
  Country: US (occurrence: US)
  Receive Date: 20121003
  Receipt Date: 20121003
  Transmission Date: 20130627
  Serious: Yes (Other)
  Sender: FDA-Public Use
  Company Number: US-ROCHE-1130827

PATIENT
  Sex: Male

DRUGS (6)
  1. RITUXAN [Suspect]
     Indication: NON-HODGKIN^S LYMPHOMA
     Route: 065
     Dates: start: 20010823
  2. CYCLOPHOSPHAMIDE [Concomitant]
  3. HYDROXYDAUNORUBICIN [Concomitant]
  4. ONCOVIN [Concomitant]
  5. PREDNISONE [Concomitant]
  6. PROCRIT [Concomitant]
     Route: 065

REACTIONS (4)
  - Deep vein thrombosis [Unknown]
  - Upper respiratory tract infection [Unknown]
  - Splenomegaly [Unknown]
  - Cough [Recovered/Resolved]
